FAERS Safety Report 20474888 (Version 3)
Quarter: 2022Q2

REPORT INFORMATION
  Report Type: Report from Study
  Country: FR (occurrence: FR)
  Receive Date: 20220215
  Receipt Date: 20220414
  Transmission Date: 20220721
  Serious: Yes (Other)
  Sender: FDA-Public Use
  Company Number: FR-KYOWAKIRIN-2022BKK000971

PATIENT

DRUGS (2)
  1. POTELIGEO [Suspect]
     Active Substance: MOGAMULIZUMAB-KPKC
     Indication: Cutaneous T-cell lymphoma
     Dosage: 1 MG/KG, EVERY WEEK IN THE FIRST MONTH
     Route: 042
  2. POTELIGEO [Suspect]
     Active Substance: MOGAMULIZUMAB-KPKC
     Dosage: 1 MG/KG, EVERY TWO WEEKS THEREAFTER
     Route: 042

REACTIONS (9)
  - Autoimmune thyroiditis [Unknown]
  - Autoimmune hepatitis [Unknown]
  - Vitiligo [Unknown]
  - Alopecia areata [Unknown]
  - Rash papulosquamous [Unknown]
  - Blood creatinine increased [Unknown]
  - Pruritus [Unknown]
  - Pyrexia [Unknown]
  - Rash [Unknown]
